FAERS Safety Report 6185144-9 (Version None)
Quarter: 2009Q2

REPORT INFORMATION
  Report Type: 
  Country: None (occurrence: None)
  Receive Date: 20090511
  Receipt Date: 20090429
  Transmission Date: 20091009
  Serious: Yes (Hospitalization)
  Sender: FDA-Public Use
  Company Number: DE-PFIZER INC-2009200943

PATIENT
  Age: 62 Year

DRUGS (3)
  1. EXEMESTANE [Suspect]
     Indication: BREAST CANCER FEMALE
     Dosage: 25 MG, 1X/DAY
     Route: 048
     Dates: start: 20080819
  2. LANTAREL [Suspect]
     Indication: POLYARTHRITIS
  3. BONIVA [Concomitant]

REACTIONS (1)
  - PETECHIAE [None]
